FAERS Safety Report 8268449-7 (Version None)
Quarter: 2012Q2

REPORT INFORMATION
  Report Type: 
  Country: None (occurrence: None)
  Receive Date: 20120409
  Receipt Date: 20120402
  Transmission Date: 20120825
  Serious: Yes (Hospitalization)
  Sender: FDA-Public Use
  Company Number: US-ABBOTT-12P-163-0920889-00

PATIENT
  Sex: Male
  Weight: 104.42 kg

DRUGS (5)
  1. ASPIRIN [Concomitant]
     Indication: PRODUCT USED FOR UNKNOWN INDICATION
  2. METOPROLOL TARTRATE [Concomitant]
     Indication: CARDIAC FLUTTER
     Dates: start: 20090101
  3. NIASPAN [Suspect]
     Indication: PRODUCT USED FOR UNKNOWN INDICATION
     Dates: start: 20090101
  4. CRESTOR [Concomitant]
     Indication: PRODUCT USED FOR UNKNOWN INDICATION
  5. FINASTERIDE [Concomitant]
     Indication: PROSTATOMEGALY

REACTIONS (7)
  - HEART RATE INCREASED [None]
  - BLOOD PRESSURE ABNORMAL [None]
  - WRONG TECHNIQUE IN DRUG USAGE PROCESS [None]
  - INAPPROPRIATE SCHEDULE OF DRUG ADMINISTRATION [None]
  - CARDIAC FLUTTER [None]
  - FLUSHING [None]
  - FEELING ABNORMAL [None]
